FAERS Safety Report 7414735-X (Version None)
Quarter: 2011Q2

REPORT INFORMATION
  Report Type: 
  Country: None (occurrence: None)
  Receive Date: 20110414
  Receipt Date: 20110212
  Transmission Date: 20111010
  Serious: Yes (Death, Other)
  Sender: FDA-Public Use
  Company Number: CN-CELGENEUS-035-20785-11022180

PATIENT

DRUGS (3)
  1. DEXAMETHASONE [Concomitant]
     Indication: MULTIPLE MYELOMA
     Route: 065
  2. THALIDOMIDE [Suspect]
     Indication: MULTIPLE MYELOMA
     Dosage: 100-200MG
     Route: 048
  3. VELCADE [Concomitant]
     Indication: MULTIPLE MYELOMA
     Route: 065

REACTIONS (12)
  - UPPER RESPIRATORY TRACT INFECTION [None]
  - NEUROPATHY PERIPHERAL [None]
  - CONSTIPATION [None]
  - DIZZINESS [None]
  - LUNG INFECTION [None]
  - FATIGUE [None]
  - MULTIPLE MYELOMA [None]
  - PYREXIA [None]
  - DIARRHOEA [None]
  - THROMBOCYTOPENIA [None]
  - SOMNOLENCE [None]
  - ABDOMINAL DISTENSION [None]
